FAERS Safety Report 17269620 (Version 2)
Quarter: 2020Q1

REPORT INFORMATION
  Report Type: Spontaneous
  Country: ES (occurrence: ES)
  Receive Date: 20200114
  Receipt Date: 20200123
  Transmission Date: 20200409
  Serious: Yes (Hospitalization, Other)
  Sender: FDA-Public Use
  Company Number: ES-SA-2020SA007055

PATIENT
  Sex: Male

DRUGS (2)
  1. LEMTRADA [Suspect]
     Active Substance: ALEMTUZUMAB
     Dosage: UNK UNK, UNK
     Route: 041
     Dates: start: 2016
  2. LEMTRADA [Suspect]
     Active Substance: ALEMTUZUMAB
     Dosage: UNK UNK, UNK
     Route: 041
     Dates: start: 2017

REACTIONS (3)
  - Immune thrombocytopenic purpura [Recovered/Resolved]
  - Platelet count decreased [Recovered/Resolved]
  - Petechiae [Recovered/Resolved]
